FAERS Safety Report 5978065-5 (Version None)
Quarter: 2008Q4

REPORT INFORMATION
  Report Type: 
  Country: None (occurrence: None)
  Receive Date: 20081126
  Receipt Date: 20081111
  Transmission Date: 20090506
  Serious: Yes (Other)
  Sender: FDA-Public Use
  Company Number: 2008S1020389

PATIENT
  Age: 44 Year
  Sex: Female

DRUGS (13)
  1. CITALOPRAM HYDROBROMIDE [Suspect]
     Indication: DRUG USE FOR UNKNOWN INDICATION
     Dosage: 20 MG;DAILY;ORAL
     Route: 048
  2. METHYLENE BLUE (METHYLTHIONINIUM CHLORIDE) [Suspect]
     Indication: DRUG USE FOR UNKNOWN INDICATION
  3. PROPOFOL [Concomitant]
  4. REMIFENTANIL [Concomitant]
  5. ROCURONIUM BROMIDE [Concomitant]
  6. DEXAMETHASONE [Concomitant]
  7. MORPHINE [Concomitant]
  8. ASPIRIN [Concomitant]
  9. SIMVASTATIN [Concomitant]
  10. ATENOLOL [Concomitant]
  11. ISOSORBIDE MONONITRATE [Concomitant]
  12. BENDROFLUMETHIAZIDE [Concomitant]
  13. FELODIPINE [Concomitant]

REACTIONS (9)
  - AGITATION [None]
  - DRUG INTERACTION [None]
  - DRUG TOXICITY [None]
  - GLASGOW COMA SCALE ABNORMAL [None]
  - MYDRIASIS [None]
  - MYOCLONUS [None]
  - PUPILLARY REFLEX IMPAIRED [None]
  - RESTLESSNESS [None]
  - SEROTONIN SYNDROME [None]
